FAERS Safety Report 8132994-5 (Version None)
Quarter: 2012Q1

REPORT INFORMATION
  Report Type: 
  Country: None (occurrence: None)
  Receive Date: 20120213
  Receipt Date: 20120104
  Transmission Date: 20120608
  Serious: Yes (Death, Other)
  Sender: FDA-Public Use
  Company Number: US-COVIDIEN/TYCO HEALTHCARE/MALLINCKRODT-T201200196

PATIENT
  Age: 7 Year
  Sex: Male
  Weight: 48 kg

DRUGS (2)
  1. IBUPROFEN [Concomitant]
     Indication: TOOTHACHE
     Dosage: 400 MG, SINGLE
     Route: 048
  2. OXYCODONE HCL [Suspect]
     Indication: TOOTHACHE
     Dosage: 30 MG, SINGLE
     Route: 048

REACTIONS (6)
  - PNEUMONIA [None]
  - ASPIRATION [None]
  - PULMONARY OEDEMA [None]
  - CARDIO-RESPIRATORY ARREST [None]
  - INTENTIONAL DRUG MISUSE [None]
  - TOXICITY TO VARIOUS AGENTS [None]
